FAERS Safety Report 20336643 (Version 2)
Quarter: 2022Q1

REPORT INFORMATION
  Report Type: Spontaneous
  Country: JP (occurrence: JP)
  Receive Date: 20220114
  Receipt Date: 20220121
  Transmission Date: 20220423
  Serious: Yes (Life-Threatening, Other)
  Sender: FDA-Public Use
  Company Number: JP-GILEAD-2022-0564813

PATIENT
  Age: 7 Decade
  Sex: Male

DRUGS (10)
  1. GENVOYA [Suspect]
     Active Substance: COBICISTAT\ELVITEGRAVIR\EMTRICITABINE\TENOFOVIR ALAFENAMIDE FUMARATE
     Indication: HIV infection
     Dosage: UNK
     Route: 048
     Dates: end: 202201
  2. HYDROMORPHONE HYDROCHLORIDE [Concomitant]
     Active Substance: HYDROMORPHONE HYDROCHLORIDE
     Route: 048
  3. VONOPRAZAN FUMARATE [Concomitant]
     Active Substance: VONOPRAZAN FUMARATE
  4. AMLODIPINE [Concomitant]
     Active Substance: AMLODIPINE BESYLATE
  5. CORTRIL [Concomitant]
     Active Substance: HYDROCORTISONE
  6. MAGNESIUM OXIDE [Concomitant]
     Active Substance: MAGNESIUM OXIDE
  7. FLUNITRAZEPAM [Concomitant]
     Active Substance: FLUNITRAZEPAM
  8. LUNESTA [Concomitant]
     Active Substance: ESZOPICLONE
  9. SENNOSIDES A AND B [Concomitant]
     Active Substance: SENNOSIDES A AND B
  10. HYDROMORPHONE HYDROCHLORIDE [Concomitant]
     Active Substance: HYDROMORPHONE HYDROCHLORIDE

REACTIONS (4)
  - Prostate cancer [Unknown]
  - Prostate cancer stage IV [Unknown]
  - Chronic kidney disease [Unknown]
  - Wrong technique in product usage process [Unknown]
